FAERS Safety Report 8365734-5 (Version None)
Quarter: 2012Q2

REPORT INFORMATION
  Report Type: 
  Country: None (occurrence: None)
  Receive Date: 20120516
  Receipt Date: 20120503
  Transmission Date: 20120825
  Serious: Yes (Other)
  Sender: FDA-Public Use
  Company Number: GB-MYLANLABS-2012S1009616

PATIENT
  Age: 15 Month

DRUGS (2)
  1. METHADONE HCL [Suspect]
     Route: 064
  2. DIAMORPHINE [Suspect]
     Route: 064

REACTIONS (4)
  - NYSTAGMUS [None]
  - VISUAL ACUITY REDUCED [None]
  - STRABISMUS [None]
  - MATERNAL EXPOSURE DURING PREGNANCY [None]
